FAERS Safety Report 8952580 (Version 1)
Quarter: 2012Q4

REPORT INFORMATION
  Report Type: 
  Country: CN (occurrence: CN)
  Receive Date: 20121205
  Receipt Date: 20121205
  Transmission Date: 20130627
  Serious: Yes (Other)
  Sender: FDA-Public Use
  Company Number: CN-BRISTOL-MYERS SQUIBB COMPANY-17155094

PATIENT
  Age: 12 Year
  Sex: Male

DRUGS (4)
  1. ETOPOSIDE [Suspect]
     Indication: ACUTE MYELOID LEUKAEMIA
  2. CYTARABINE [Suspect]
     Indication: ACUTE MYELOID LEUKAEMIA
     Dosage: with  Mitoxantrone:1gm2 per12 hrs,Etoposide:2gm2 per12 hrs,3gm2 per 12hrs
  3. MITOXANTRONE [Suspect]
     Indication: ACUTE MYELOID LEUKAEMIA
  4. PIRARUBICIN [Suspect]
     Indication: ACUTE MYELOID LEUKAEMIA

REACTIONS (3)
  - Autoimmune thrombocytopenia [Recovered/Resolved]
  - Epistaxis [None]
  - Haematuria [None]
